FAERS Safety Report 4863507-9 (Version None)
Quarter: 2005Q4

REPORT INFORMATION
  Report Type: 
  Country: None (occurrence: None)
  Receive Date: 20051222
  Receipt Date: 20050322
  Transmission Date: 20060501
  Serious: No
  Sender: FDA-Public Use
  Company Number: US-GLAXOSMITHKLINE-A0550839A

PATIENT
  Age: 84 Year
  Sex: Female

DRUGS (5)
  1. FLONASE [Suspect]
     Dosage: 2SPR PER DAY
     Route: 045
     Dates: start: 20020101, end: 20040101
  2. LIPITOR [Concomitant]
  3. GLYBURIDE [Concomitant]
  4. PROTONIX [Concomitant]
  5. ACTONEL [Concomitant]

REACTIONS (1)
  - NASAL ULCER [None]
